FAERS Safety Report 8200125-9 (Version None)
Quarter: 2012Q1

REPORT INFORMATION
  Report Type: 
  Country: None (occurrence: None)
  Receive Date: 20120306
  Receipt Date: 20120221
  Transmission Date: 20120608
  Serious: Yes (Hospitalization)
  Sender: FDA-Public Use
  Company Number: WAES 1202USA01216

PATIENT
  Age: 91 Year
  Sex: Female

DRUGS (4)
  1. SIMVASTATIN [Suspect]
     Dosage: PO
     Route: 048
  2. TRACLEER [Suspect]
     Indication: PULMONARY ARTERIAL HYPERTENSION
     Dosage: PO
     Route: 048
     Dates: start: 20110103
  3. WARFARIN SODIUM [Concomitant]
  4. NITROGLYCERIN [Concomitant]

REACTIONS (3)
  - DRUG HYPERSENSITIVITY [None]
  - OFF LABEL USE [None]
  - DYSPNOEA [None]
